FAERS Safety Report 17197358 (Version 1)
Quarter: 2019Q4

REPORT INFORMATION
  Report Type: Spontaneous
  Country: ES (occurrence: ES)
  Receive Date: 20191224
  Receipt Date: 20191224
  Transmission Date: 20200122
  Serious: Yes (Other)
  Sender: FDA-Public Use
  Company Number: ES-SHIRE-ES201944646AA

PATIENT

DRUGS (3)
  1. METHYLPREDNISOLONE. [Suspect]
     Active Substance: METHYLPREDNISOLONE
     Indication: FOETAL EXPOSURE TIMING UNSPECIFIED
     Dosage: 1 GRAM, 1X/DAY:QD FOR 3 DAYS
     Route: 064
     Dates: start: 201610
  2. FINGOLIMOD. [Suspect]
     Active Substance: FINGOLIMOD
     Indication: FOETAL EXPOSURE TIMING UNSPECIFIED
     Dosage: UNK
     Route: 064
  3. HUMAN NORMAL IMMUNOGLOBULIN [Suspect]
     Active Substance: HUMAN IMMUNOGLOBULIN G
     Indication: FOETAL EXPOSURE TIMING UNSPECIFIED
     Dosage: 0.4 GRAM PER KILOGRAM, 1X/DAY:QD FOR 5 DAYS
     Route: 064
     Dates: start: 201701

REACTIONS (3)
  - Premature baby [Unknown]
  - Low birth weight baby [Unknown]
  - Maternal exposure timing unspecified [Unknown]
